FAERS Safety Report 4700855-7 (Version None)
Quarter: 2005Q2

REPORT INFORMATION
  Report Type: 
  Country: None (occurrence: None)
  Receive Date: 20050114
  Receipt Date: 20050114
  Transmission Date: 20051028
  Serious: Yes (Other)
  Sender: FDA-Public Use
  Company Number: None

PATIENT
  Age: 48 Year
  Sex: Male
  Weight: 94.8018 kg

DRUGS (1)
  1. OXYCODONE HCL [Suspect]
     Dosage: 80MG ONE QID PO
     Route: 048
     Dates: start: 20040701

REACTIONS (5)
  - CONDITION AGGRAVATED [None]
  - GASTROINTESTINAL PAIN [None]
  - NAUSEA [None]
  - PAIN [None]
  - PHARMACEUTICAL PRODUCT COMPLAINT [None]
